FAERS Safety Report 6414018-0 (Version None)
Quarter: 2009Q4

REPORT INFORMATION
  Report Type: 
  Country: None (occurrence: None)
  Receive Date: 20091023
  Receipt Date: 20091023
  Transmission Date: 20100525
  Serious: Yes (Death, Life-Threatening, Hospitalization, Disabling, Other)
  Sender: FDA-Public Use
  Company Number: None

PATIENT
  Age: 50 Year
  Sex: Male
  Weight: 54.4316 kg

DRUGS (2)
  1. VANCOMYCIN [Suspect]
     Indication: WOUND INFECTION
     Dosage: 1500MG BID IV DRIP
     Route: 041
     Dates: start: 20090904, end: 20091001
  2. DAPTOMYCIN [Suspect]
     Dosage: 650MG QD 1V DRIP
     Route: 041
     Dates: start: 20091002, end: 20091005

REACTIONS (13)
  - ARTHRALGIA [None]
  - BLISTER [None]
  - BLOOD LACTIC ACID INCREASED [None]
  - CONFUSIONAL STATE [None]
  - DRUG RASH WITH EOSINOPHILIA AND SYSTEMIC SYMPTOMS [None]
  - EOSINOPHIL COUNT DECREASED [None]
  - LEUKOCYTOSIS [None]
  - MENTAL STATUS CHANGES [None]
  - METABOLIC ACIDOSIS [None]
  - PLATELET COUNT DECREASED [None]
  - RASH MACULAR [None]
  - RENAL FAILURE ACUTE [None]
  - RESPIRATORY FAILURE [None]
